FAERS Safety Report 6463407-7 (Version None)
Quarter: 2009Q4

REPORT INFORMATION
  Report Type: 
  Country: None (occurrence: None)
  Receive Date: 20091201
  Receipt Date: 20090910
  Transmission Date: 20100525
  Serious: Yes (Other)
  Sender: FDA-Public Use
  Company Number: US-AMGEN-US363876

PATIENT
  Sex: Female

DRUGS (6)
  1. ENBREL [Suspect]
     Indication: PSORIATIC ARTHROPATHY
     Dates: start: 20090101, end: 20090617
  2. HUMIRA [Suspect]
     Dates: start: 20080801, end: 20090407
  3. LEVOTHYROXINE SODIUM [Concomitant]
  4. DYAZIDE [Concomitant]
  5. BUPROPION HCL [Concomitant]
  6. AMLODIPINE [Concomitant]

REACTIONS (13)
  - ARTHRALGIA [None]
  - BURNING SENSATION [None]
  - CHEILITIS [None]
  - CHILLS [None]
  - DRUG HYPERSENSITIVITY [None]
  - HYPOAESTHESIA ORAL [None]
  - LIP DRY [None]
  - LYMPHADENOPATHY [None]
  - MYALGIA [None]
  - PAIN [None]
  - PARAESTHESIA ORAL [None]
  - PYREXIA [None]
  - RASH [None]
